FAERS Safety Report 7746660-9 (Version None)
Quarter: 2011Q3

REPORT INFORMATION
  Report Type: 
  Country: None (occurrence: None)
  Receive Date: 20110913
  Receipt Date: 20100425
  Transmission Date: 20111222
  Serious: No
  Sender: FDA-Public Use
  Company Number: US-BAYER-201021307NA

PATIENT
  Age: 53 Year
  Sex: Female

DRUGS (1)
  1. MIRENA [Suspect]
     Indication: MENORRHAGIA
     Dosage: UNK
     Dates: start: 20100421

REACTIONS (4)
  - VAGINAL HAEMORRHAGE [None]
  - RASH [None]
  - ABDOMINAL PAIN UPPER [None]
  - METRORRHAGIA [None]
